FAERS Safety Report 19637031 (Version 1)
Quarter: 2021Q3

REPORT INFORMATION
  Report Type: Report from Study
  Country: US (occurrence: US)
  Receive Date: 20210730
  Receipt Date: 20210730
  Transmission Date: 20211014
  Serious: Yes (Death, Hospitalization, Other)
  Sender: FDA-Public Use
  Company Number: US-BIOVITRUM-DOV-000932

PATIENT
  Sex: Female

DRUGS (3)
  1. LYNPARZA [Concomitant]
     Active Substance: OLAPARIB
     Indication: BREAST CANCER FEMALE
  2. DOPTELET [Suspect]
     Active Substance: AVATROMBOPAG MALEATE
     Indication: NEOPLASM MALIGNANT
     Dosage: 40 MILLIGRAM, QD
     Route: 048
     Dates: start: 20210224
  3. DOPTELET [Suspect]
     Active Substance: AVATROMBOPAG MALEATE
     Indication: THROMBOCYTOPENIA
     Dosage: 40 MILLIGRAM, QD
     Route: 048
     Dates: start: 202104

REACTIONS (3)
  - Death [Fatal]
  - Off label use [Unknown]
  - Back pain [Unknown]
